FAERS Safety Report 4524098-5 (Version None)
Quarter: 2004Q4

REPORT INFORMATION
  Report Type: 
  Country: None (occurrence: None)
  Receive Date: 20041209
  Receipt Date: 20041129
  Transmission Date: 20050328
  Serious: Yes (Other)
  Sender: FDA-Public Use
  Company Number: 2004102431

PATIENT
  Sex: Female

DRUGS (1)
  1. NEURONTIN [Suspect]
     Indication: TRIGEMINAL NEURALGIA
     Dosage: UNKNOWN
     Route: 065

REACTIONS (4)
  - CHOLESTASIS [None]
  - CONDITION AGGRAVATED [None]
  - MICROLITHIASIS [None]
  - TRIGEMINAL NEURALGIA [None]
